FAERS Safety Report 12144036 (Version 11)
Quarter: 2020Q2

REPORT INFORMATION
  Report Type: Report from Study
  Country: JP (occurrence: JP)
  Receive Date: 20160304
  Receipt Date: 20200622
  Transmission Date: 20200713
  Serious: Yes (Hospitalization, Other)
  Sender: FDA-Public Use
  Company Number: JP-BIOVITRUM-2015JP0342

PATIENT
  Age: 5 Month
  Sex: Male
  Weight: 6 kg

DRUGS (12)
  1. ORFADIN [Suspect]
     Active Substance: NITISINONE
     Dosage: 2.5
     Route: 048
     Dates: start: 20150508, end: 20150707
  2. ORFADIN [Suspect]
     Active Substance: NITISINONE
     Route: 048
     Dates: start: 20181123, end: 20190515
  3. CRAVIT [Concomitant]
     Active Substance: LEVOFLOXACIN
  4. ORFADIN [Suspect]
     Active Substance: NITISINONE
     Route: 048
     Dates: start: 20150708, end: 20160926
  5. PHENOBAL [Concomitant]
     Active Substance: PHENOBARBITAL
  6. JUVELA [Concomitant]
     Active Substance: .ALPHA.-TOCOPHEROL\RETINOL
  7. URSO [Concomitant]
     Active Substance: URSODIOL
  8. ORFADIN [Suspect]
     Active Substance: NITISINONE
     Route: 048
     Dates: start: 20160927, end: 20161107
  9. INCREMIN [Concomitant]
  10. ORFADIN [Suspect]
     Active Substance: NITISINONE
     Indication: TYROSINAEMIA
     Dosage: 2.5 MG
     Route: 048
     Dates: start: 20150110, end: 20150507
  11. PANVITAN [Concomitant]
     Active Substance: VITAMINS
  12. LEVOCARNITINE. [Concomitant]
     Active Substance: LEVOCARNITINE
     Dates: start: 20150708

REACTIONS (10)
  - Hepatomegaly [Recovering/Resolving]
  - Splenomegaly [Recovering/Resolving]
  - Otitis media [Recovering/Resolving]
  - Amino acid level increased [Not Recovered/Not Resolved]
  - Amino acid level increased [Unknown]
  - Intellectual disability [Unknown]
  - Febrile convulsion [Not Recovered/Not Resolved]
  - Amino acid level increased [Unknown]
  - Product physical issue [Unknown]
  - Conjunctivitis [Recovering/Resolving]

NARRATIVE: CASE EVENT DATE: 20150518
